FAERS Safety Report 23102932 (Version 2)
Quarter: 2024Q1

REPORT INFORMATION
  Report Type: Report from Study
  Country: IT (occurrence: IT)
  Receive Date: 20231025
  Receipt Date: 20240206
  Transmission Date: 20240410
  Serious: Yes (Hospitalization)
  Sender: FDA-Public Use
  Company Number: IT-ROCHE-3438627

PATIENT
  Age: 54 Year

DRUGS (7)
  1. BENDAMUSTINE [Suspect]
     Active Substance: BENDAMUSTINE
     Indication: Follicular lymphoma stage II
     Dosage: UNK (R-BENDAMUSTINE - RITUXIMAB, BENDAMUSTINE)
     Route: 065
  2. DOXORUBICIN [Suspect]
     Active Substance: DOXORUBICIN
     Indication: Follicular lymphoma stage II
     Dosage: UNK (R-CHOP - CYCLOPHOSPHAMIDE, DOXORUBICIN, PREDNISONE, RITUXIMAB, VINCRISTINE)
     Route: 065
  3. CYCLOPHOSPHAMIDE [Suspect]
     Active Substance: CYCLOPHOSPHAMIDE
     Indication: Follicular lymphoma stage II
     Dosage: UNK (R-CHOP - CYCLOPHOSPHAMIDE, DOXORUBICIN, PREDNISONE, RITUXIMAB, VINCRISTINE)
     Route: 065
  4. EPCORITAMAB [Suspect]
     Active Substance: EPCORITAMAB
     Indication: Follicular lymphoma stage II
     Dosage: UNK
     Route: 065
  5. PREDNISONE [Suspect]
     Active Substance: PREDNISONE
     Indication: Follicular lymphoma stage II
     Dosage: UNK (R-CHOP - CYCLOPHOSPHAMIDE, DOXORUBICIN, PREDNISONE, RITUXIMAB, VINCRISTINE)
     Route: 065
  6. RITUXIMAB [Suspect]
     Active Substance: RITUXIMAB
     Indication: Follicular lymphoma stage II
     Dosage: UNK (R-CHOP - CYCLOPHOSPHAMIDE, DOXORUBICIN, PREDNISONE, RITUXIMAB, VINCRISTINE)
     Route: 065
  7. VINCRISTINE [Suspect]
     Active Substance: VINCRISTINE
     Indication: Follicular lymphoma stage II
     Dosage: UNK (R-CHOP - CYCLOPHOSPHAMIDE, DOXORUBICIN, PREDNISONE, RITUXIMAB, VINCRISTINE)
     Route: 065

REACTIONS (2)
  - COVID-19 [Recovered/Resolved]
  - Intentional product use issue [Unknown]

NARRATIVE: CASE EVENT DATE: 20220601
